FAERS Safety Report 4715180-8 (Version None)
Quarter: 2005Q3

REPORT INFORMATION
  Report Type: 
  Country: None (occurrence: None)
  Receive Date: 20050715
  Receipt Date: 20020827
  Transmission Date: 20060218
  Serious: Yes (Hospitalization)
  Sender: FDA-Public Use
  Company Number: PL-ROCHE-320250

PATIENT
  Age: 40 Year
  Sex: Male
  Weight: 72 kg

DRUGS (25)
  1. DACLIZUMAB [Suspect]
     Route: 042
     Dates: start: 20020713, end: 20020713
  2. DACLIZUMAB [Suspect]
     Dosage: FOR A TOTAL OF 4 DOSES.
     Route: 042
     Dates: start: 20020726, end: 20020905
  3. MYCOPHENOLATE MOFETIL [Suspect]
     Route: 048
     Dates: start: 20020713, end: 20020819
  4. MYCOPHENOLATE MOFETIL [Suspect]
     Route: 048
     Dates: start: 20020820, end: 20020829
  5. MYCOPHENOLATE MOFETIL [Suspect]
     Route: 048
     Dates: start: 20020902
  6. MYCOPHENOLATE MOFETIL [Suspect]
     Route: 048
     Dates: start: 20050625
  7. CYCLOSPORINE [Suspect]
     Route: 065
     Dates: start: 20020802
  8. CYCLOSPORINE [Suspect]
     Route: 065
     Dates: start: 20020905, end: 20020905
  9. CYCLOSPORINE [Suspect]
     Route: 065
     Dates: start: 20020906
  10. CYCLOSPORINE [Suspect]
     Route: 065
     Dates: start: 20050517, end: 20050625
  11. PREDNISONE [Suspect]
     Route: 065
     Dates: start: 20020815
  12. PREDNISONE [Suspect]
     Route: 065
     Dates: start: 20020828, end: 20020903
  13. PREDNISONE [Suspect]
     Route: 065
     Dates: start: 20020904, end: 20020911
  14. PREDNISONE [Suspect]
     Route: 065
     Dates: start: 20020912
  15. PREDNISONE [Suspect]
     Route: 065
     Dates: start: 20050120
  16. ACYCLOVIR [Concomitant]
     Dates: start: 20020716, end: 20020925
  17. NYSTATIN [Concomitant]
     Dates: start: 20020715
  18. COTRIM [Concomitant]
     Dates: start: 20020716
  19. AMLODIPINE [Concomitant]
     Dates: start: 20020718
  20. METOPROLOL [Concomitant]
     Dates: start: 20020717
  21. RANITIDINE [Concomitant]
     Dates: start: 20020715
  22. DIHYDRALAZINUM [Concomitant]
     Dates: start: 20020725
  23. OMEPRAZOLE [Concomitant]
     Route: 042
     Dates: start: 20020822, end: 20020826
  24. SIMVASTATIN [Concomitant]
     Dates: start: 20021206
  25. DOXAZOSIN [Concomitant]
     Dates: start: 20050113

REACTIONS (6)
  - ABDOMINAL PAIN [None]
  - CYSTITIS [None]
  - CYTOMEGALOVIRUS INFECTION [None]
  - DRUG INEFFECTIVE [None]
  - HAEMATURIA [None]
  - LYMPHOPROLIFERATIVE DISORDER [None]
